FAERS Safety Report 11587245 (Version 1)
Quarter: 2015Q3

REPORT INFORMATION
  Report Type: Spontaneous
  Country: US (occurrence: US)
  Receive Date: 20150916
  Receipt Date: 20150916
  Transmission Date: 20151125
  Serious: No
  Sender: FDA-Public Use
  Company Number: US-ELI_LILLY_AND_COMPANY-US200802002071

PATIENT
  Age: 57 Year
  Sex: Female
  Weight: 52.61 kg

DRUGS (7)
  1. NEXIUM [Concomitant]
     Active Substance: ESOMEPRAZOLE MAGNESIUM
  2. FORTEO [Suspect]
     Active Substance: TERIPARATIDE
     Dosage: 20 UG, EACH EVENING
     Dates: start: 20080211
  3. FORTEO [Suspect]
     Active Substance: TERIPARATIDE
     Indication: OSTEOPOROSIS
     Dosage: 20 UG, EACH MORNING
     Dates: start: 20071102, end: 20071121
  4. CALCIUM [Concomitant]
     Active Substance: CALCIUM
     Dosage: 600 MG, 2/D
  5. ASACOL [Concomitant]
     Active Substance: MESALAMINE
  6. FISH OIL [Concomitant]
     Active Substance: FISH OIL
  7. NIFEREX [Concomitant]
     Active Substance: IRON\POLYSACCHARIDES

REACTIONS (5)
  - Headache [Recovered/Resolved]
  - Palpitations [Recovered/Resolved]
  - Chest discomfort [Recovered/Resolved]
  - Heart rate increased [Recovered/Resolved]
  - Asthenia [Recovered/Resolved]

NARRATIVE: CASE EVENT DATE: 200711
